FAERS Safety Report 7234405-0 (Version None)
Quarter: 2011Q1

REPORT INFORMATION
  Report Type: 
  Country: None (occurrence: None)
  Receive Date: 20110119
  Receipt Date: 20110118
  Transmission Date: 20110831
  Serious: Yes (Other)
  Sender: FDA-Public Use
  Company Number: US-PFIZER INC-2011012338

PATIENT

DRUGS (2)
  1. GEODON [Suspect]
     Dosage: 50 MG, 2X/DAY
  2. CLOMIPRAMINE [Concomitant]
     Dosage: UNK

REACTIONS (3)
  - HYPOAESTHESIA [None]
  - PARAESTHESIA [None]
  - NEUROPATHY PERIPHERAL [None]
